FAERS Safety Report 21712773 (Version 1)
Quarter: 2022Q4

REPORT INFORMATION
  Report Type: Spontaneous
  Country: US (occurrence: None)
  Receive Date: 20221208
  Receipt Date: 20221208
  Transmission Date: 20230113
  Serious: No
  Sender: FDA-Public Use
  Company Number: None

PATIENT
  Age: 65 Year
  Sex: Male

DRUGS (1)
  1. RIVAROXABAN [Suspect]
     Active Substance: RIVAROXABAN
     Dates: start: 20221024

REACTIONS (3)
  - Haemoptysis [None]
  - Chronic obstructive pulmonary disease [None]
  - Pneumothorax [None]

NARRATIVE: CASE EVENT DATE: 20221024
